FAERS Safety Report 22151357 (Version 1)
Quarter: 2023Q1

REPORT INFORMATION
  Report Type: Spontaneous
  Country: US (occurrence: None)
  Receive Date: 20230328
  Receipt Date: 20230328
  Transmission Date: 20230417
  Serious: No
  Sender: FDA-Public Use
  Company Number: None

PATIENT
  Age: 70 Year
  Sex: Male
  Weight: 66.6 kg

DRUGS (5)
  1. CLOPIDOGREL [Suspect]
     Active Substance: CLOPIDOGREL BISULFATE
     Indication: Stent placement
     Dosage: OTHER QUANTITY : 1 TABLET(S);?FREQUENCY : DAILY;?
     Route: 048
  2. LOVASTATIN [Concomitant]
     Active Substance: LOVASTATIN
  3. ASPIRIN [Concomitant]
     Active Substance: ASPIRIN
  4. CALCIUM [Concomitant]
     Active Substance: CALCIUM
  5. MAGNESIUM [Concomitant]
     Active Substance: MAGNESIUM

REACTIONS (2)
  - Abdominal discomfort [None]
  - Skin discolouration [None]

NARRATIVE: CASE EVENT DATE: 20230308
